FAERS Safety Report 15538938 (Version 7)
Quarter: 2019Q1

REPORT INFORMATION
  Report Type: Spontaneous
  Country: CA (occurrence: CA)
  Receive Date: 20181022
  Receipt Date: 20190226
  Transmission Date: 20190417
  Serious: Yes (Other)
  Sender: FDA-Public Use
  Company Number: CA-PFIZER INC-2016252846

PATIENT
  Age: 48 Year
  Sex: Female

DRUGS (21)
  1. COSENTYX [Suspect]
     Active Substance: SECUKINUMAB
     Indication: PSORIASIS
     Dosage: 300 MG, 1 EVERY 1 MONTH(S)
     Route: 058
  2. COSENTYX [Suspect]
     Active Substance: SECUKINUMAB
     Dosage: 300 MG, 1 EVERY 1 MONTH(S)
     Route: 058
  3. NEORAL [Suspect]
     Active Substance: CYCLOSPORINE
     Dosage: 150 MG, UNK
     Route: 048
  4. ENBREL [Suspect]
     Active Substance: ETANERCEPT
     Dosage: 50 MG, WEEKLY
     Route: 058
  5. ENBREL [Suspect]
     Active Substance: ETANERCEPT
     Dosage: 50 MG, 2X/WEEK
     Route: 058
  6. CICLOSPORIN [Suspect]
     Active Substance: CYCLOSPORINE
     Indication: PSORIASIS
     Dosage: 150 MG, WEEKLY
     Route: 048
  7. REMICADE [Suspect]
     Active Substance: INFLIXIMAB
     Dosage: 350 MG, UNK
     Route: 042
  8. ENBREL [Suspect]
     Active Substance: ETANERCEPT
     Dosage: 50 MG, QWK
     Route: 058
  9. ENBREL [Suspect]
     Active Substance: ETANERCEPT
     Dosage: 50 MG, 2 TIMES/WK
     Route: 058
  10. METHOTREXATE SODIUM. [Suspect]
     Active Substance: METHOTREXATE SODIUM
     Dosage: UNK
     Route: 065
  11. NEORAL [Suspect]
     Active Substance: CYCLOSPORINE
     Indication: PSORIASIS
     Dosage: 150 MG, 2X/DAY
     Route: 048
  12. CICLOSPORIN [Suspect]
     Active Substance: CYCLOSPORINE
     Dosage: 150 MG, QD
     Route: 048
  13. HUMIRA [Suspect]
     Active Substance: ADALIMUMAB
     Dosage: 40 MG, QWK
     Route: 058
  14. NEORAL [Suspect]
     Active Substance: CYCLOSPORINE
     Dosage: 150 MG, 2 EVERY 1 DAY
     Route: 048
  15. NEORAL [Suspect]
     Active Substance: CYCLOSPORINE
     Dosage: 150 MG, 2X/WEEK
     Route: 048
  16. REMICADE [Suspect]
     Active Substance: INFLIXIMAB
     Dosage: 350 MG, UNK
     Route: 042
  17. NEORAL [Suspect]
     Active Substance: CYCLOSPORINE
     Dosage: 150 MG, QWK
     Route: 048
  18. CLOBETASOL [Concomitant]
     Active Substance: CLOBETASOL
     Dosage: UNK
     Route: 065
  19. ACITRETIN. [Concomitant]
     Active Substance: ACITRETIN
     Dosage: UNK
     Route: 065
  20. NEORAL [Suspect]
     Active Substance: CYCLOSPORINE
     Dosage: 150 MG, 1X/DAY
     Route: 048
  21. BETAMETHASONE DIPROPIONATE/CALCIPOTRIOL [Concomitant]
     Dosage: UNK
     Route: 065

REACTIONS (22)
  - Sinusitis [Recovered/Resolved]
  - Glucose tolerance impaired [Recovered/Resolved]
  - Urticaria [Recovered/Resolved]
  - Guttate psoriasis [Recovered/Resolved]
  - Pneumonia [Recovered/Resolved]
  - Blood alkaline phosphatase increased [Recovered/Resolved]
  - Infection [Recovered/Resolved]
  - Pruritus [Recovered/Resolved]
  - Bronchitis [Recovered/Resolved]
  - Oedema [Recovered/Resolved]
  - Glycosylated haemoglobin increased [Recovered/Resolved]
  - Skin irritation [Recovered/Resolved]
  - Blood pressure increased [Recovered/Resolved]
  - Haemoglobin decreased [Recovered/Resolved]
  - Localised oedema [Recovered/Resolved]
  - Serum ferritin decreased [Recovered/Resolved]
  - Skin lesion [Recovered/Resolved]
  - Arthritis [Recovered/Resolved]
  - Blood iron decreased [Recovered/Resolved]
  - Erythema [Recovered/Resolved]
  - Psoriasis [Recovered/Resolved]
  - Upper respiratory tract infection [Recovered/Resolved]
